FAERS Safety Report 16559286 (Version 1)
Quarter: 2019Q3

REPORT INFORMATION
  Report Type: Spontaneous
  Country: US (occurrence: US)
  Receive Date: 20190710
  Receipt Date: 20190710
  Transmission Date: 20191004
  Serious: Yes (Other)
  Sender: FDA-Public Use
  Company Number: None

PATIENT
  Age: 62 Year
  Sex: Female
  Weight: 63 kg

DRUGS (6)
  1. METRONIDAZOLE. [Concomitant]
     Active Substance: METRONIDAZOLE
  2. CALTRATE 600 + D3 [Concomitant]
  3. EQUATE SUPPORT ADVANCED LUBRICATING EYE [Suspect]
     Active Substance: POLYETHYLENE GLYCOL 400\PROPYLENE GLYCOL
     Indication: DRY EYE
     Dosage: ?          QUANTITY:2 DROP(S);?
     Route: 047
  4. AMOXICILLIN 500 MG CAPSULES [Concomitant]
     Active Substance: AMOXICILLIN
  5. OFLOXACIN. [Concomitant]
     Active Substance: OFLOXACIN
  6. FIBER GUMMIES [Concomitant]

REACTIONS (5)
  - Eyelid disorder [None]
  - Sinusitis [None]
  - Eye infection [None]
  - Recalled product [None]
  - Acne [None]

NARRATIVE: CASE EVENT DATE: 20190704
